FAERS Safety Report 4362069-2 (Version None)
Quarter: 2004Q2

REPORT INFORMATION
  Report Type: 
  Country: None (occurrence: None)
  Receive Date: 20040521
  Receipt Date: 20040227
  Transmission Date: 20050107
  Serious: Yes (Hospitalization)
  Sender: FDA-Public Use
  Company Number: US-GLAXOSMITHKLINE-A0500367A

PATIENT
  Age: 30 Year
  Sex: Female

DRUGS (3)
  1. WELLBUTRIN [Suspect]
     Indication: DEPRESSION
     Route: 048
     Dates: start: 20040210, end: 20040224
  2. GLUCOPHAGE [Concomitant]
     Dosage: 500MG TWICE PER DAY
  3. ZANTAC [Concomitant]

REACTIONS (4)
  - FALL [None]
  - GRAND MAL CONVULSION [None]
  - LOSS OF CONSCIOUSNESS [None]
  - TONGUE BITING [None]
